FAERS Safety Report 6804782-0 (Version None)
Quarter: 2010Q2

REPORT INFORMATION
  Report Type: 
  Country: None (occurrence: None)
  Receive Date: 20100628
  Receipt Date: 20070517
  Transmission Date: 20101027
  Serious: Yes (Other)
  Sender: FDA-Public Use
  Company Number: US-PFIZER INC-2007040011

PATIENT

DRUGS (1)
  1. GEODON [Suspect]
     Indication: MANIA

REACTIONS (1)
  - MANIA [None]
